FAERS Safety Report 7817423-0 (Version None)
Quarter: 2011Q4

REPORT INFORMATION
  Report Type: 
  Country: None (occurrence: None)
  Receive Date: 20111012
  Receipt Date: 20110927
  Transmission Date: 20120403
  Serious: Yes (Life-Threatening, Other)
  Sender: FDA-Public Use
  Company Number: TUK2011A00160

PATIENT
  Age: 68 Year
  Sex: Male

DRUGS (5)
  1. METFORMIN HCL [Concomitant]
  2. SILDENAFIL CITRATE [Concomitant]
  3. SIMVASTATIN [Concomitant]
  4. PIOGLITAZONE [Suspect]
     Indication: DIABETES MELLITUS
     Dosage: (15 MG) ORAL, ORAL
     Route: 048
     Dates: start: 20071011, end: 20100104
  5. PIOGLITAZONE [Suspect]
     Indication: DIABETES MELLITUS
     Dosage: (15 MG) ORAL, ORAL
     Route: 048
     Dates: start: 20100104, end: 20110901

REACTIONS (2)
  - TRANSITIONAL CELL CARCINOMA [None]
  - HAEMATURIA [None]
